FAERS Safety Report 8587088 (Version 3)
Quarter: 2014Q1

REPORT INFORMATION
  Report Type: Spontaneous
  Country: US (occurrence: None)
  Receive Date: 20120323
  Receipt Date: 20140306
  Transmission Date: 20141002
  Serious: Yes (Other)
  Sender: FDA-Public Use
  Company Number: 163-21880-11030920

PATIENT
  Age: 76 Year
  Sex: Female
  Weight: 49.9 kg

DRUGS (8)
  1. REVLIMID [Suspect]
     Indication: MYELODYSPLASTIC SYNDROME
     Dosage: 5 MG, 1 IN 1 D, PO
     Route: 048
     Dates: start: 20100304
  2. REVLIMID [Suspect]
     Indication: LYMPHATIC DISORDER
     Dosage: 5 MG, 1 IN 1 D, PO
     Route: 048
     Dates: start: 20100304
  3. ARICEPT [Concomitant]
     Indication: MYELODYSPLASTIC SYNDROME
  4. BENICAR [Concomitant]
  5. HYDROCHLOROTHIAZIDE [Concomitant]
  6. PROVERA [Concomitant]
  7. VITAMIN D (ERGOCALCIFEROL) [Concomitant]
  8. WARFARIN SODIUM [Concomitant]

REACTIONS (2)
  - Thrombosis [None]
  - Memory impairment [None]
